FAERS Safety Report 8762705 (Version 3)
Quarter: 2012Q4

REPORT INFORMATION
  Report Type: 
  Country: DE (occurrence: DE)
  Receive Date: 20120830
  Receipt Date: 20121010
  Transmission Date: 20130627
  Serious: Yes (Other)
  Sender: FDA-Public Use
  Company Number: DE-AMGEN-DEUSP2012054475

PATIENT
  Sex: Female

DRUGS (2)
  1. PROLIA [Suspect]
     Indication: PRODUCT USED FOR UNKNOWN INDICATION
     Dosage: UNK UNK, q6mo
  2. MIMPARA [Suspect]
     Indication: BLOOD PARATHYROID HORMONE INCREASED
     Dosage: UNK

REACTIONS (2)
  - Tetany [Unknown]
  - Hypocalcaemia [Recovered/Resolved]
